FAERS Safety Report 6200717-2 (Version None)
Quarter: 2009Q2

REPORT INFORMATION
  Report Type: 
  Country: None (occurrence: None)
  Receive Date: 20090522
  Receipt Date: 20080620
  Transmission Date: 20091009
  Serious: Yes (Hospitalization, Other)
  Sender: FDA-Public Use
  Company Number: US-ALEXION-A200800120

PATIENT
  Sex: Female

DRUGS (2)
  1. SOLIRIS [Suspect]
     Indication: PAROXYSMAL NOCTURNAL HAEMOGLOBINURIA
     Dosage: 600 MG, SINGLE
     Route: 042
     Dates: start: 20080516, end: 20080516
  2. IMMUNOSUPPRESSIVE AGENTS [Concomitant]
     Indication: IMMUNOSUPPRESSANT DRUG THERAPY
     Dosage: UNK, QD
     Route: 048

REACTIONS (5)
  - BLOOD ALBUMIN DECREASED [None]
  - CANDIDIASIS [None]
  - HEADACHE [None]
  - LIVER DISORDER [None]
  - NAUSEA [None]
